FAERS Safety Report 4667486-9 (Version None)
Quarter: 2005Q2

REPORT INFORMATION
  Report Type: 
  Country: None (occurrence: None)
  Receive Date: 20050520
  Receipt Date: 20050511
  Transmission Date: 20051028
  Serious: Yes (Disabling)
  Sender: FDA-Public Use
  Company Number: 200511214EU

PATIENT
  Age: 44 Year
  Sex: Male

DRUGS (1)
  1. KETEK [Suspect]
     Indication: CHLAMYDIAL INFECTION
     Route: 048
     Dates: start: 20050411

REACTIONS (2)
  - HYPERACUSIS [None]
  - TINNITUS [None]
